FAERS Safety Report 19645853 (Version 1)
Quarter: 2021Q3

REPORT INFORMATION
  Report Type: Other
  Country: US (occurrence: US)
  Receive Date: 20210802
  Receipt Date: 20210802
  Transmission Date: 20211014
  Serious: Yes (Other)
  Sender: FDA-Public Use
  Company Number: US-ROCHE-2877651

PATIENT
  Sex: Male
  Weight: 95.34 kg

DRUGS (2)
  1. ELIQUIS [Concomitant]
     Active Substance: APIXABAN
     Dosage: ONGOING YES
     Route: 048
     Dates: start: 2021
  2. OCREVUS [Suspect]
     Active Substance: OCRELIZUMAB
     Indication: RELAPSING MULTIPLE SCLEROSIS
     Dosage: ONGOING YES?DATE OF TREATMENT: 15/NOV/2019, 29/NOV/2019, 03/JUN/2020, 04/JAN/2021
     Route: 042
     Dates: start: 2018

REACTIONS (2)
  - Urinary tract infection [Unknown]
  - Dysuria [Not Recovered/Not Resolved]

NARRATIVE: CASE EVENT DATE: 2019
